FAERS Safety Report 10706393 (Version 1)
Quarter: 2015Q1

REPORT INFORMATION
  Report Type: Spontaneous
  Country: TH (occurrence: None)
  Receive Date: 20150109
  Receipt Date: 20150109
  Transmission Date: 20150721
  Serious: No
  Sender: FDA-Public Use
  Company Number: None

PATIENT
  Age: 50 Year
  Sex: Male
  Weight: 56.4 kg

DRUGS (1)
  1. BOTOX [Suspect]
     Active Substance: ONABOTULINUMTOXINA
     Indication: TORTICOLLIS
     Dosage: 230 UNITS PRN/ AS NEEDED
     Route: 030
     Dates: start: 20080131, end: 20140721

REACTIONS (1)
  - Dysphagia [None]

NARRATIVE: CASE EVENT DATE: 20140721
